FAERS Safety Report 6466421-0 (Version None)
Quarter: 2009Q4

REPORT INFORMATION
  Report Type: 
  Country: None (occurrence: None)
  Receive Date: 20091202
  Receipt Date: 20090820
  Transmission Date: 20100525
  Serious: No
  Sender: FDA-Public Use
  Company Number: US-AMGEN-KDL318047

PATIENT
  Sex: Male
  Weight: 115.8 kg

DRUGS (7)
  1. ENBREL [Suspect]
     Indication: ANKYLOSING SPONDYLITIS
     Route: 058
     Dates: start: 20060927
  2. ALLEGRA [Concomitant]
  3. CARDURA [Concomitant]
  4. EXFORGE [Concomitant]
  5. PRILOSEC [Concomitant]
  6. ALBUTEROL [Concomitant]
  7. NIASPAN [Concomitant]

REACTIONS (2)
  - DIARRHOEA [None]
  - FLATULENCE [None]
